FAERS Safety Report 22142584 (Version 1)
Quarter: 2023Q1

REPORT INFORMATION
  Report Type: Spontaneous
  Country: US (occurrence: None)
  Receive Date: 20230327
  Receipt Date: 20230327
  Transmission Date: 20230418
  Serious: No
  Sender: FDA-Public Use
  Company Number: 2023A053030

PATIENT
  Age: 24348 Day
  Sex: Female
  Weight: 72.1 kg

DRUGS (2)
  1. SYMBICORT [Suspect]
     Active Substance: BUDESONIDE\FORMOTEROL FUMARATE DIHYDRATE
     Indication: Asthma
     Dosage: 2 PUFFS
     Route: 055
  2. BUDESONIDE\FORMOTEROL [Concomitant]
     Active Substance: BUDESONIDE\FORMOTEROL
     Indication: Asthma
     Dosage: 2 PUFFS
     Route: 055
     Dates: start: 20230302

REACTIONS (6)
  - Musculoskeletal discomfort [Unknown]
  - Asthma [Unknown]
  - Secretion discharge [Unknown]
  - Device defective [Unknown]
  - Device use issue [Unknown]
  - Drug ineffective [Unknown]

NARRATIVE: CASE EVENT DATE: 20230302
